FAERS Safety Report 11795869 (Version 1)
Quarter: 2015Q4

REPORT INFORMATION
  Report Type: Report from Study
  Country: CL (occurrence: CL)
  Receive Date: 20151203
  Receipt Date: 20151203
  Transmission Date: 20160305
  Serious: Yes (Death)
  Sender: FDA-Public Use
  Company Number: CL-ROCHE-1629257

PATIENT
  Sex: Male
  Weight: 46 kg

DRUGS (1)
  1. XELODA [Suspect]
     Active Substance: CAPECITABINE
     Indication: GASTRIC CANCER
     Dosage: 14 DAYS PER CYCLE
     Route: 048
     Dates: start: 20150724

REACTIONS (11)
  - Vomiting [Recovered/Resolved]
  - Disease progression [Fatal]
  - Blood pressure decreased [Fatal]
  - Eating disorder [Fatal]
  - Decreased appetite [Not Recovered/Not Resolved]
  - Nausea [Not Recovered/Not Resolved]
  - Nausea [Recovered/Resolved]
  - Drug ineffective [Unknown]
  - Listless [Not Recovered/Not Resolved]
  - Abdominal pain upper [Not Recovered/Not Resolved]
  - Food aversion [Recovered/Resolved]
